FAERS Safety Report 5106623-9 (Version None)
Quarter: 2006Q3

REPORT INFORMATION
  Report Type: 
  Country: None (occurrence: None)
  Receive Date: 20060913
  Receipt Date: 20060828
  Transmission Date: 20061208
  Serious: Yes (Hospitalization)
  Sender: FDA-Public Use
  Company Number: HU200608006163

PATIENT
  Sex: Female

DRUGS (1)
  1. DULOXETINE HYDORCHLORIDE(DULOXETINE HYDORCHLORIDE) CAPSULE [Suspect]
     Dosage: ORAL
     Route: 048
     Dates: start: 20060701

REACTIONS (2)
  - BILIARY COLIC [None]
  - CHOLELITHIASIS [None]
